FAERS Safety Report 8482413-4 (Version None)
Quarter: 2012Q3

REPORT INFORMATION
  Report Type: 
  Country: None (occurrence: None)
  Receive Date: 20120702
  Receipt Date: 20120622
  Transmission Date: 20120928
  Serious: Yes (Hospitalization)
  Sender: FDA-Public Use
  Company Number: US-GLAXOSMITHKLINE-A0894989A

PATIENT
  Age: 53 Year
  Sex: Male

DRUGS (8)
  1. INSULIN [Concomitant]
  2. TRICOR [Concomitant]
  3. AVANDIA [Suspect]
     Indication: DIABETES MELLITUS
     Dosage: 4MG PER DAY
     Route: 048
     Dates: start: 20040101, end: 20061001
  4. ATENOLOL [Concomitant]
     Dates: end: 20061001
  5. WELLBUTRIN SR [Concomitant]
  6. LOPRESSOR [Concomitant]
  7. PROTONIX [Concomitant]
  8. LIPITOR [Concomitant]

REACTIONS (2)
  - MYOCARDIAL INFARCTION [None]
  - STENT PLACEMENT [None]
